FAERS Safety Report 15470049 (Version 10)
Quarter: 2020Q1

REPORT INFORMATION
  Report Type: Report from Study
  Country: US (occurrence: US)
  Receive Date: 20181005
  Receipt Date: 20200123
  Transmission Date: 20200409
  Serious: Yes (Hospitalization)
  Sender: FDA-Public Use
  Company Number: US-ACTELION-A-NJ2018-177957

PATIENT
  Age: 36 Year
  Sex: Female
  Weight: 58.05 kg

DRUGS (28)
  1. DIGOXIN. [Concomitant]
     Active Substance: DIGOXIN
     Dosage: 0.125 MG, UNK
     Dates: start: 20180606
  2. IBUPROFEN. [Concomitant]
     Active Substance: IBUPROFEN
     Dosage: 800 MG, UNK
     Dates: start: 20170802
  3. PROPRANOLOL [Concomitant]
     Active Substance: PROPRANOLOL HYDROCHLORIDE
     Dosage: 20 MG
     Dates: start: 20180606
  4. VENTOLIN [Concomitant]
     Active Substance: ALBUTEROL SULFATE
     Dosage: UNK
     Dates: start: 20170802
  5. OPSUMIT [Suspect]
     Active Substance: MACITENTAN
     Indication: PULMONARY ARTERIAL HYPERTENSION
     Dosage: 10 MG, QD
     Route: 048
     Dates: start: 20170803
  6. XARELTO [Concomitant]
     Active Substance: RIVAROXABAN
  7. LASIX [Concomitant]
     Active Substance: FUROSEMIDE
     Dosage: 40 MG, UNK
     Dates: start: 20170802
  8. NAPROXEN. [Concomitant]
     Active Substance: NAPROXEN
     Dosage: 500 MG, UNK
     Dates: start: 20180409
  9. PROTONIX [Concomitant]
     Active Substance: PANTOPRAZOLE SODIUM
     Dosage: 40 MG
     Dates: start: 20170802
  10. ZOFRAN [Concomitant]
     Active Substance: ONDANSETRON HYDROCHLORIDE
     Dosage: 8 MG, UNK
     Dates: start: 20170802
  11. VELETRI [Suspect]
     Active Substance: EPOPROSTENOL
     Dosage: 20 NG/KG, PER MIN
     Route: 042
  12. CLEOCIN [Concomitant]
     Active Substance: CLINDAMYCIN PHOSPHATE
     Dosage: 75 MG, UNK
     Dates: start: 20170905
  13. VELETRI [Suspect]
     Active Substance: EPOPROSTENOL
     Indication: PULMONARY ARTERIAL HYPERTENSION
     Dosage: 31 NG/KG, PER MIN
     Route: 042
  14. VELETRI [Suspect]
     Active Substance: EPOPROSTENOL
     Dosage: 32 NG/KG, PER MIN
     Route: 042
  15. REMODULIN [Suspect]
     Active Substance: TREPROSTINIL
     Indication: PULMONARY HYPERTENSION
     Dosage: 81 NG/KG, PER MIN
     Route: 042
     Dates: start: 20170613
  16. CLARITIN [Concomitant]
     Active Substance: LORATADINE
     Dosage: 10 MG, UNK
     Dates: start: 20170802
  17. NORCO [Concomitant]
     Active Substance: ACETAMINOPHEN\HYDROCODONE BITARTRATE
     Dosage: 5-325 MG
     Dates: start: 20170802
  18. XANAX [Concomitant]
     Active Substance: ALPRAZOLAM
     Dosage: 0.5 MG, UNK
     Dates: start: 20170802
  19. ZANTAC [Concomitant]
     Active Substance: RANITIDINE HYDROCHLORIDE
     Dosage: 150 MG, UNK
     Dates: start: 20170802
  20. COUMADIN [Concomitant]
     Active Substance: WARFARIN SODIUM
  21. VELETRI [Suspect]
     Active Substance: EPOPROSTENOL
     Dosage: 34 NG/KG, PER MIN
     Route: 042
  22. BENADRYL [Concomitant]
     Active Substance: DIPHENHYDRAMINE HYDROCHLORIDE
     Dosage: 25 MG, UNK
     Dates: start: 20170802
  23. VITAMIN D [Concomitant]
     Active Substance: VITAMIN D NOS
     Dosage: UNK
     Dates: start: 20170802
  24. REVATIO [Concomitant]
     Active Substance: SILDENAFIL CITRATE
  25. BACTRIM [Concomitant]
     Active Substance: SULFAMETHOXAZOLE\TRIMETHOPRIM
     Dosage: UNK
     Dates: start: 20170905
  26. BUMEX [Concomitant]
     Active Substance: BUMETANIDE
     Dosage: 1 MG, UNK
     Dates: start: 20180501
  27. POTASSIUM [Concomitant]
     Active Substance: POTASSIUM
     Dosage: 25 MEQ
     Dates: start: 20170802
  28. SPIRONOLACTONE. [Concomitant]
     Active Substance: SPIRONOLACTONE
     Dosage: 25 MG
     Dates: start: 20180501

REACTIONS (18)
  - Surgery [Recovered/Resolved]
  - Drain placement [Unknown]
  - Pain in jaw [Unknown]
  - Epistaxis [Recovered/Resolved]
  - Diarrhoea [Recovered/Resolved]
  - Fluid retention [Unknown]
  - Abdominal distension [Unknown]
  - Hernia [Unknown]
  - Hospitalisation [Recovered/Resolved]
  - Post procedural infection [Recovered/Resolved]
  - Nausea [Not Recovered/Not Resolved]
  - Amenorrhoea [Not Recovered/Not Resolved]
  - Pulmonary hypertension [Unknown]
  - Hernia pain [Not Recovered/Not Resolved]
  - Abdominal cavity drainage [Unknown]
  - Intestinal obstruction [Unknown]
  - Ascites [Unknown]
  - Flushing [Not Recovered/Not Resolved]

NARRATIVE: CASE EVENT DATE: 201808
